FAERS Safety Report 14299307 (Version 1)
Quarter: 2017Q4

REPORT INFORMATION
  Report Type: Spontaneous
  Country: BR (occurrence: BR)
  Receive Date: 20171219
  Receipt Date: 20171219
  Transmission Date: 20180321
  Serious: Yes (Other)
  Sender: FDA-Public Use
  Company Number: BR-009507513-1606BRA002749

PATIENT
  Age: 39 Year
  Sex: Female
  Weight: 50 kg

DRUGS (2)
  1. NUVARING [Suspect]
     Active Substance: ETHINYL ESTRADIOL\ETONOGESTREL
     Indication: CONTRACEPTION
     Dosage: 1 VAGINAL RING, QM, 3 WEEKS IN/ONE WEEK RING FREE
     Route: 067
     Dates: start: 2014, end: 201605
  2. NUVARING [Suspect]
     Active Substance: ETHINYL ESTRADIOL\ETONOGESTREL
     Indication: UTERINE LEIOMYOMA
     Dosage: 1 VAGINAL RING, QM, 3 WEEKS IN/ONE WEEK RING FREE
     Route: 067
     Dates: start: 201606

REACTIONS (5)
  - Uterine leiomyoma [Unknown]
  - Abnormal withdrawal bleeding [Recovered/Resolved]
  - Headache [Not Recovered/Not Resolved]
  - Product use in unapproved indication [Unknown]
  - Inappropriate schedule of drug administration [Unknown]

NARRATIVE: CASE EVENT DATE: 20160601
